FAERS Safety Report 5480428-1 (Version None)
Quarter: 2007Q4

REPORT INFORMATION
  Report Type: 
  Country: None (occurrence: None)
  Receive Date: 20071009
  Receipt Date: 20071004
  Transmission Date: 20080405
  Serious: Yes (Other)
  Sender: FDA-Public Use
  Company Number: A0652953A

PATIENT
  Age: 94 Year
  Sex: Female
  Weight: 52 kg

DRUGS (2)
  1. AEROLIN [Suspect]
     Indication: ASTHMA
     Route: 065
     Dates: start: 20070519, end: 20070519
  2. INTAL [Concomitant]
     Indication: ASTHMA
     Route: 065
     Dates: start: 19770101

REACTIONS (2)
  - ASPHYXIA [None]
  - THROAT IRRITATION [None]
